FAERS Safety Report 5455066-7 (Version None)
Quarter: 2007Q3

REPORT INFORMATION
  Report Type: 
  Country: None (occurrence: None)
  Receive Date: 20070913
  Receipt Date: 20070823
  Transmission Date: 20080115
  Serious: Yes (Other)
  Sender: FDA-Public Use
  Company Number: 6037226

PATIENT
  Age: 48 Year
  Sex: Male

DRUGS (2)
  1. CLARITHROMYCIN [Suspect]
     Indication: PHARYNGITIS
     Dosage: 1000 MG (500 MG, 2 IN 1 D)
  2. CLARITHROMYCIN [Suspect]
     Indication: TONSILLITIS
     Dosage: 1000 MG (500 MG, 2 IN 1 D)

REACTIONS (10)
  - ABDOMINAL PAIN [None]
  - ARTHRALGIA [None]
  - CARDIOMEGALY [None]
  - GLOMERULONEPHRITIS PROLIFERATIVE [None]
  - HAEMATURIA [None]
  - HENOCH-SCHONLEIN PURPURA [None]
  - OEDEMA PERIPHERAL [None]
  - PROTEINURIA [None]
  - PULMONARY CONGESTION [None]
  - RENAL PAPILLARY NECROSIS [None]
